FAERS Safety Report 9769668 (Version 1)
Quarter: 2013Q4

REPORT INFORMATION
  Report Type: Spontaneous
  Country: US (occurrence: US)
  Receive Date: 20131218
  Receipt Date: 20131218
  Transmission Date: 20140711
  Serious: No
  Sender: FDA-Public Use
  Company Number: US-VERTEX PHARMACEUTICALS INC-AE-2011-000369

PATIENT
  Age: 55 Year
  Sex: Female
  Weight: 72.27 kg

DRUGS (10)
  1. INCIVEK [Suspect]
     Indication: HEPATITIS C
     Route: 048
     Dates: start: 20110625
  2. RIBAVIRIN [Concomitant]
     Indication: HEPATITIS C
     Route: 048
     Dates: start: 20110625
  3. PEGINTERFERON A [Concomitant]
     Indication: HEPATITIS C
     Route: 058
     Dates: start: 20110625
  4. CELEXA [Concomitant]
     Indication: ARTHRALGIA
     Route: 048
  5. OXYCODONE [Concomitant]
     Indication: FIBROMYALGIA
     Route: 048
  6. KLONOPIN [Concomitant]
     Indication: FIBROMYALGIA
     Route: 048
  7. ASPIRIN [Concomitant]
     Indication: ANTICOAGULANT THERAPY
     Route: 048
  8. AMLODIPINE [Concomitant]
     Route: 048
  9. ISOSORBIDE MONONITRATE [Concomitant]
     Route: 048
  10. AMBIEN [Concomitant]
     Route: 048

REACTIONS (7)
  - Arthralgia [Not Recovered/Not Resolved]
  - Feeling abnormal [Unknown]
  - Headache [Not Recovered/Not Resolved]
  - Somnolence [Not Recovered/Not Resolved]
  - Pain [Not Recovered/Not Resolved]
  - Nausea [Not Recovered/Not Resolved]
  - Pruritus [Not Recovered/Not Resolved]
